FAERS Safety Report 4932772-1 (Version None)
Quarter: 2006Q1

REPORT INFORMATION
  Report Type: 
  Country: None (occurrence: None)
  Receive Date: 20060302
  Receipt Date: 20060302
  Transmission Date: 20060701
  Serious: Yes (Life-Threatening)
  Sender: FDA-Public Use
  Company Number: None

PATIENT
  Age: 67 Year
  Sex: Female
  Weight: 67.586 kg

DRUGS (1)
  1. DECADRON [Suspect]

REACTIONS (2)
  - DRUG DEPENDENCE [None]
  - DRUG TOLERANCE DECREASED [None]
